FAERS Safety Report 6522119-1 (Version None)
Quarter: 2009Q4

REPORT INFORMATION
  Report Type: 
  Country: None (occurrence: None)
  Receive Date: 20091230
  Receipt Date: 20091216
  Transmission Date: 20100525
  Serious: Yes (Hospitalization)
  Sender: FDA-Public Use
  Company Number: FR-PFIZER INC-2009310775

PATIENT
  Sex: Male

DRUGS (3)
  1. XANAX [Suspect]
     Indication: INTENTIONAL OVERDOSE
     Dosage: UNK
     Route: 048
     Dates: start: 20090605, end: 20090605
  2. NIFLURIL [Suspect]
     Indication: INTENTIONAL OVERDOSE
     Dosage: UNK
     Route: 048
     Dates: start: 20090605, end: 20090605
  3. LOXAPAC [Suspect]
     Indication: AGITATION
     Dosage: UNK DF, UNK
     Route: 030
     Dates: start: 20090605, end: 20090605

REACTIONS (2)
  - ANGIOEDEMA [None]
  - INTENTIONAL OVERDOSE [None]
